FAERS Safety Report 11791708 (Version 1)
Quarter: 2015Q4

REPORT INFORMATION
  Report Type: Spontaneous
  Country: CZ (occurrence: CZ)
  Receive Date: 20151201
  Receipt Date: 20151201
  Transmission Date: 20160305
  Serious: Yes (Other)
  Sender: FDA-Public Use
  Company Number: CZ-BAXTER-2015BAX063747

PATIENT
  Age: 14 Year
  Sex: Female

DRUGS (10)
  1. ENDOXAN 1G [Suspect]
     Active Substance: CYCLOPHOSPHAMIDE
     Indication: RETROPERITONEAL FIBROSIS
     Route: 042
  2. 18F-FDG [Concomitant]
     Active Substance: FLUDEOXYGLUCOSE
     Indication: POSITRON EMISSION TOMOGRAM
     Dosage: 155MBQ
     Route: 042
  3. RITUXIMAB [Concomitant]
     Active Substance: RITUXIMAB
     Indication: IMMUNOGLOBULIN THERAPY
     Route: 065
  4. IOMERON 400 [Concomitant]
     Indication: POSITRON EMISSION TOMOGRAM
     Dosage: 3 MIN/BED
     Route: 065
  5. ENDOXAN 1G [Suspect]
     Active Substance: CYCLOPHOSPHAMIDE
     Indication: GRANULOMA
  6. ENDOXAN 1G [Suspect]
     Active Substance: CYCLOPHOSPHAMIDE
     Indication: VASCULITIS
  7. METHOTREXATE [Concomitant]
     Active Substance: METHOTREXATE
     Indication: VASCULITIS
  8. GD-DTPA [Concomitant]
     Indication: ANGIOGRAM
     Route: 042
  9. METHOTREXATE [Concomitant]
     Active Substance: METHOTREXATE
     Indication: RETROPERITONEAL FIBROSIS
  10. METHOTREXATE [Concomitant]
     Active Substance: METHOTREXATE
     Indication: GRANULOMA
     Route: 065

REACTIONS (1)
  - Drug ineffective [Unknown]
